FAERS Safety Report 20257529 (Version 2)
Quarter: 2022Q1

REPORT INFORMATION
  Report Type: Report from Study
  Country: FR (occurrence: FR)
  Receive Date: 20211230
  Receipt Date: 20220124
  Transmission Date: 20220423
  Serious: Yes (Hospitalization, Other)
  Sender: FDA-Public Use
  Company Number: FR-BoehringerIngelheim-2021-BI-145675

PATIENT
  Age: 65 Year
  Sex: Female

DRUGS (15)
  1. NINTEDANIB [Suspect]
     Active Substance: NINTEDANIB
     Indication: Obliterative bronchiolitis
     Route: 048
     Dates: start: 20210625
  2. NINTEDANIB [Suspect]
     Active Substance: NINTEDANIB
     Route: 048
     Dates: start: 20211117, end: 20211214
  3. Adoport? [Concomitant]
     Indication: Complications of transplanted lung
     Route: 048
     Dates: start: 20200201
  4. Cellecept? [Concomitant]
     Indication: Complications of transplanted lung
     Route: 048
     Dates: start: 20200901
  5. Solupred? [Concomitant]
     Indication: Complications of transplanted lung
     Route: 048
     Dates: start: 20201205
  6. Orocal D3? [Concomitant]
     Indication: Osteoporosis prophylaxis
     Route: 048
  7. Inexium? [Concomitant]
     Indication: Prophylaxis
     Route: 048
  8. LERCANIDIPINE [Concomitant]
     Active Substance: LERCANIDIPINE
     Indication: Prophylaxis
     Route: 048
  9. Temerit? [Concomitant]
     Indication: Prophylaxis
     Route: 048
     Dates: start: 20210609
  10. Imovane? [Concomitant]
     Indication: Insomnia
     Route: 048
  11. Zitromax? [Concomitant]
     Indication: Prophylaxis against transplant rejection
     Route: 048
  12. Lasilix? [Concomitant]
     Indication: Prophylaxis
     Route: 048
  13. PRAVASTATIN [Concomitant]
     Active Substance: PRAVASTATIN
     Indication: Dyslipidaemia
     Route: 048
     Dates: start: 20210301
  14. VALACYCLOVIR HYDROCHLORIDE [Concomitant]
     Active Substance: VALACYCLOVIR HYDROCHLORIDE
     Indication: Complications of transplanted lung
     Route: 048
  15. RACECADOTRIL [Concomitant]
     Active Substance: RACECADOTRIL
     Indication: Prophylaxis
     Route: 048

REACTIONS (1)
  - Diabetic ketoacidosis [Recovered/Resolved]

NARRATIVE: CASE EVENT DATE: 20211115
